FAERS Safety Report 15153503 (Version 1)
Quarter: 2018Q4

REPORT INFORMATION
  Report Type: Spontaneous
  Country: GB (occurrence: GB)
  Receive Date: 20180717
  Receipt Date: 20180717
  Transmission Date: 20190204
  Serious: No
  Sender: FDA-Public Use
  Company Number: GB-B. BRAUN MEDICAL INC.-2052222

PATIENT
  Age: 29 Year
  Sex: Female
  Weight: 75 kg

DRUGS (6)
  1. LANSOPRAZOLE. [Concomitant]
     Active Substance: LANSOPRAZOLE
     Dates: start: 20180106
  2. METRONIDAZOLE INJECTION USP (5 MG/ML) IN PAB? PLASTIC CONTAINER (NDA 0 [Suspect]
     Active Substance: METRONIDAZOLE
     Dates: start: 20180509
  3. LIVIAL [Concomitant]
     Active Substance: TIBOLONE
     Dates: start: 20171106
  4. METFORMIN [Concomitant]
     Active Substance: METFORMIN HYDROCHLORIDE
     Dates: start: 20160810
  5. EPIPEN [Concomitant]
     Active Substance: EPINEPHRINE
     Dates: start: 20180425
  6. CYCLIZINE [Concomitant]
     Active Substance: CYCLIZINE
     Dates: start: 20180403, end: 20180501

REACTIONS (1)
  - Vomiting [Not Recovered/Not Resolved]

NARRATIVE: CASE EVENT DATE: 20180509
